FAERS Safety Report 13464307 (Version 1)
Quarter: 2017Q2

REPORT INFORMATION
  Report Type: Spontaneous
  Country: US (occurrence: US)
  Receive Date: 20170420
  Receipt Date: 20170420
  Transmission Date: 20170830
  Serious: Yes (Other)
  Sender: FDA-Public Use
  Company Number: US-ROCHE-718593

PATIENT
  Age: 14 Year
  Sex: Male
  Weight: 81.6 kg

DRUGS (5)
  1. ZITHROMAX [Concomitant]
     Active Substance: AZITHROMYCIN DIHYDRATE
     Indication: PHARYNGITIS
     Route: 065
  2. NAPROSYN [Concomitant]
     Active Substance: NAPROXEN
     Indication: PAIN
     Route: 065
  3. ANTI-INFLAMMATORY [Concomitant]
     Active Substance: UNSPECIFIED INGREDIENT
     Indication: PAIN
     Route: 065
  4. ACCUTANE [Suspect]
     Active Substance: ISOTRETINOIN
     Route: 065
     Dates: start: 19991129, end: 2001
  5. ACCUTANE [Suspect]
     Active Substance: ISOTRETINOIN
     Indication: ACNE
     Dosage: FREQUENCY AS REPORTED QD, 40 MG IN THE MORNING, 20 MG IN THE EVENING.
     Route: 065
     Dates: start: 19981002, end: 19990303

REACTIONS (17)
  - Crohn^s disease [Unknown]
  - Plantar fasciitis [Unknown]
  - Musculoskeletal chest pain [Unknown]
  - Emotional distress [Unknown]
  - Dry skin [Unknown]
  - Gastrointestinal injury [Unknown]
  - Inflammatory bowel disease [Unknown]
  - Pharyngitis [Unknown]
  - Bursitis [Unknown]
  - Back pain [Unknown]
  - Contusion [Unknown]
  - Scar [Unknown]
  - Bursitis [Unknown]
  - Contusion [Unknown]
  - Blood triglycerides increased [Unknown]
  - Joint effusion [Unknown]
  - Ligament sprain [Unknown]

NARRATIVE: CASE EVENT DATE: 19981013
